FAERS Safety Report 6043880-9 (Version None)
Quarter: 2009Q1

REPORT INFORMATION
  Report Type: 
  Country: None (occurrence: None)
  Receive Date: 20090120
  Receipt Date: 20090112
  Transmission Date: 20090719
  Serious: Yes (Hospitalization)
  Sender: FDA-Public Use
  Company Number: BR-ASTRAZENECA-2009UW00970

PATIENT
  Age: 53 Year
  Sex: Male
  Weight: 90 kg

DRUGS (2)
  1. ATENOL [Suspect]
     Indication: HYPERTENSION
     Route: 048
     Dates: start: 20000101, end: 20080101
  2. SELOZOK [Suspect]
     Route: 048
     Dates: start: 20080801

REACTIONS (3)
  - DYSPNOEA [None]
  - INFARCTION [None]
  - PLEURAL EFFUSION [None]
